FAERS Safety Report 6852616-0 (Version None)
Quarter: 2010Q3

REPORT INFORMATION
  Report Type: 
  Country: None (occurrence: None)
  Receive Date: 20100717
  Receipt Date: 20080102
  Transmission Date: 20110219
  Serious: No
  Sender: FDA-Public Use
  Company Number: US-PFIZER INC-2007097137

PATIENT
  Sex: Female
  Weight: 90.7 kg

DRUGS (3)
  1. CHANTIX [Suspect]
     Indication: SMOKING CESSATION THERAPY
     Dates: start: 20070927
  2. TOPROL-XL [Concomitant]
     Indication: HYPERTENSION
  3. ALL OTHER THERAPEUTIC PRODUCTS [Concomitant]
     Indication: DIABETES MELLITUS

REACTIONS (5)
  - DECREASED APPETITE [None]
  - DYSGEUSIA [None]
  - DYSPEPSIA [None]
  - FLATULENCE [None]
  - WEIGHT DECREASED [None]
